FAERS Safety Report 8092012-4 (Version None)
Quarter: 2012Q1

REPORT INFORMATION
  Report Type: 
  Country: None (occurrence: None)
  Receive Date: 20120131
  Receipt Date: 20120127
  Transmission Date: 20120608
  Serious: Yes (Hospitalization)
  Sender: FDA-Public Use
  Company Number: US-AMGEN-USASP2012005811

PATIENT
  Age: 59 Year
  Sex: Female

DRUGS (15)
  1. METHOTREXATE [Suspect]
     Indication: LYMPHOMA
     Dosage: UNK UNK, PER CHEMO REGIM
     Route: 042
     Dates: start: 20111229, end: 20120103
  2. LISINOPRIL [Concomitant]
     Dosage: 10 MG, UNK
  3. PROTONIX [Concomitant]
     Dosage: 40 MG, UNK
  4. LEUCOVORIN SODIUM [Suspect]
     Indication: LYMPHOMA
     Dosage: UNK UNK, PER CHEMO REGIM
     Route: 048
     Dates: start: 20111229, end: 20120103
  5. RITUXIMAB [Suspect]
     Indication: LYMPHOMA
     Dosage: 761 MG, PER CHEMO REGIM
     Route: 042
     Dates: start: 20111229, end: 20120103
  6. METFORMIN HCL [Concomitant]
     Dosage: 500 MG, UNK
  7. OXYCONTIN [Concomitant]
     Dosage: 10 MG, UNK
  8. NEULASTA [Suspect]
     Indication: LYMPHOMA
     Dosage: 6 MG, UNK
     Route: 058
     Dates: start: 20111229, end: 20120103
  9. CYTARABINE [Suspect]
     Indication: LYMPHOMA
     Dosage: 4.06 G, PER CHEMO REGIM
     Route: 042
     Dates: start: 20111229, end: 20120103
  10. AMBIEN [Concomitant]
     Dosage: 5 MG, UNK
  11. CIPROFLOXACIN [Concomitant]
     Dosage: 500 MG, UNK
  12. SIMVASTATIN [Concomitant]
     Dosage: 20 MG, UNK
  13. CELEXA [Concomitant]
     Dosage: 20 MG, UNK
  14. FLUCONAZOLE [Concomitant]
     Dosage: 100 MG, UNK
  15. MAGNESIUM OXIDE [Concomitant]
     Dosage: 500 MG, UNK

REACTIONS (1)
  - SEPTIC SHOCK [None]
